FAERS Safety Report 13671565 (Version 1)
Quarter: 2017Q2

REPORT INFORMATION
  Report Type: Spontaneous
  Country: US (occurrence: US)
  Receive Date: 20170620
  Receipt Date: 20170620
  Transmission Date: 20170830
  Serious: Yes (Hospitalization)
  Sender: FDA-Public Use
  Company Number: None

PATIENT
  Age: 75 Year
  Sex: Female

DRUGS (8)
  1. VITAMIN E [Concomitant]
     Active Substance: .ALPHA.-TOCOPHEROL
  2. VALSARTAN. [Concomitant]
     Active Substance: VALSARTAN
  3. ENBREL [Suspect]
     Active Substance: ETANERCEPT
     Indication: RHEUMATOID ARTHRITIS
     Dosage: 25MG/0.5ML
     Route: 058
     Dates: start: 20150904
  4. VITAMIN B [Concomitant]
     Active Substance: VITAMIN B
  5. SINGULAIR [Concomitant]
     Active Substance: MONTELUKAST SODIUM
  6. LEVOTHYROXINE. [Concomitant]
     Active Substance: LEVOTHYROXINE
  7. NORVASC [Concomitant]
     Active Substance: AMLODIPINE BESYLATE
  8. GAVISCON [Concomitant]
     Active Substance: ALUMINUM HYDROXIDE\MAGNESIUM CARBONATE

REACTIONS (1)
  - Amnesia [None]
